FAERS Safety Report 6512917-2 (Version None)
Quarter: 2009Q4

REPORT INFORMATION
  Report Type: 
  Country: None (occurrence: None)
  Receive Date: 20091222
  Receipt Date: 20091222
  Transmission Date: 20100525
  Serious: Yes (Other)
  Sender: FDA-Public Use
  Company Number: None

PATIENT
  Age: 33 Month
  Sex: Female
  Weight: 56.6996 kg

DRUGS (1)
  1. LAMOTRIGINE [Suspect]
     Indication: BIPOLAR DISORDER
     Dosage: 1 PILL TWICE A DAY PO
     Route: 048
     Dates: start: 20091101, end: 20091221

REACTIONS (10)
  - ANXIETY [None]
  - BALANCE DISORDER [None]
  - BRUXISM [None]
  - DEPRESSION [None]
  - DIZZINESS [None]
  - DRUG INEFFECTIVE [None]
  - MUSCLE TWITCHING [None]
  - PRODUCT SUBSTITUTION ISSUE [None]
  - RESTLESS LEGS SYNDROME [None]
  - SUICIDAL IDEATION [None]
